FAERS Safety Report 12664125 (Version 3)
Quarter: 2017Q2

REPORT INFORMATION
  Report Type: Spontaneous
  Country: US (occurrence: US)
  Receive Date: 20160818
  Receipt Date: 20170412
  Transmission Date: 20170830
  Serious: Yes (Hospitalization, Other)
  Sender: FDA-Public Use
  Company Number: US-BAYER-2016-160451

PATIENT
  Age: 32 Year
  Sex: Female
  Weight: 111.11 kg

DRUGS (3)
  1. DIFLUCAN [Concomitant]
     Active Substance: FLUCONAZOLE
     Dosage: UNK
     Dates: start: 2002
  2. MIRENA [Suspect]
     Active Substance: LEVONORGESTREL
     Indication: CONTRACEPTION
     Dosage: T20 MCG/24HR, CONT
     Route: 015
     Dates: start: 20090709, end: 20141008
  3. MIRENA [Suspect]
     Active Substance: LEVONORGESTREL
     Indication: MENORRHAGIA

REACTIONS (8)
  - Depression [Not Recovered/Not Resolved]
  - Pelvic inflammatory disease [None]
  - Infertility female [None]
  - Embedded device [None]
  - Device difficult to use [None]
  - Device issue [None]
  - Device use issue [None]
  - Post procedural haemorrhage [None]

NARRATIVE: CASE EVENT DATE: 2013
